FAERS Safety Report 24042994 (Version 3)
Quarter: 2024Q4

REPORT INFORMATION
  Report Type: Spontaneous
  Country: US (occurrence: US)
  Receive Date: 20240702
  Receipt Date: 20241114
  Transmission Date: 20250115
  Serious: Yes (Hospitalization)
  Sender: DAIICHI
  Company Number: US-DSJP-DSU-2024-129555

PATIENT
  Age: 36 Year
  Sex: Female

DRUGS (3)
  1. VANFLYTA [Suspect]
     Active Substance: QUIZARTINIB DIHYDROCHLORIDE
     Indication: Acute myeloid leukaemia
     Dosage: 26.5 MG, BID (TAKE 1 TABLET BY MOUTH DAILY FOR 14 DAYS, THEN TAKE 2 TABLETS DAILY FOR 14 DAYS OFF)
     Route: 048
     Dates: start: 20240503
  2. VANFLYTA [Suspect]
     Active Substance: QUIZARTINIB DIHYDROCHLORIDE
     Dosage: 53 MG, QD (TAKE 1 TABLET BY MOUTH DAILY FOR 14 DAYS, THEN TAKE 2 TABLETS DAILY FOR 14 DAYS OFF)
     Route: 048
  3. VANFLYTA [Suspect]
     Active Substance: QUIZARTINIB DIHYDROCHLORIDE
     Dosage: 35.4 MG, QD
     Route: 048
     Dates: start: 20240503

REACTIONS (2)
  - Stem cell transplant [Unknown]
  - Product administration error [Not Recovered/Not Resolved]

NARRATIVE: CASE EVENT DATE: 20240618
